FAERS Safety Report 6006941-6 (Version None)
Quarter: 2008Q4

REPORT INFORMATION
  Report Type: 
  Country: None (occurrence: None)
  Receive Date: 20081217
  Receipt Date: 20071127
  Transmission Date: 20090506
  Serious: No
  Sender: FDA-Public Use
  Company Number: US-ASTRAZENECA-2007UW27150

PATIENT
  Age: 74 Year
  Sex: Female
  Weight: 61.2 kg

DRUGS (9)
  1. CRESTOR [Suspect]
     Indication: BLOOD CHOLESTEROL INCREASED
     Route: 048
  2. SPIRIVA [Concomitant]
  3. LEXAPRO [Concomitant]
  4. WELLBUTRIN [Concomitant]
  5. ASPIRIN [Concomitant]
     Dosage: 81 MG
  6. LOVAZA [Concomitant]
  7. GLUCOSAMINE [Concomitant]
  8. CHONDROITIN [Concomitant]
  9. SENOKOT [Concomitant]

REACTIONS (2)
  - MUSCLE SPASMS [None]
  - PHARYNGEAL OEDEMA [None]
